FAERS Safety Report 7953306-3 (Version None)
Quarter: 2011Q4

REPORT INFORMATION
  Report Type: 
  Country: None (occurrence: None)
  Receive Date: 20111202
  Receipt Date: 20111122
  Transmission Date: 20120403
  Serious: Yes (Hospitalization)
  Sender: FDA-Public Use
  Company Number: IT-BRISTOL-MYERS SQUIBB COMPANY-16248130

PATIENT
  Age: 78 Year
  Sex: Male

DRUGS (8)
  1. ALLOPURINOL [Concomitant]
  2. LISINOPRIL [Suspect]
     Dates: start: 20090101, end: 20110824
  3. CEFTAZIDIME [Concomitant]
  4. TRINIPLAS [Concomitant]
     Dosage: TRINIPLAS  TTS
  5. COUMADIN [Suspect]
     Indication: MYOCARDIAL ISCHAEMIA
     Route: 048
     Dates: start: 20090101, end: 20110824
  6. LANOXIN [Suspect]
     Indication: MYOCARDIAL ISCHAEMIA
     Dates: start: 20090101, end: 20110824
  7. SEQUACOR [Concomitant]
  8. PHENOBARBITAL TAB [Concomitant]

REACTIONS (6)
  - CANDIDIASIS [None]
  - COUGH [None]
  - DYSPHAGIA [None]
  - INTERNATIONAL NORMALISED RATIO INCREASED [None]
  - ASTHENIA [None]
  - DYSPNOEA [None]
